FAERS Safety Report 5336387-5 (Version None)
Quarter: 2007Q2

REPORT INFORMATION
  Report Type: 
  Country: None (occurrence: None)
  Receive Date: 20070523
  Receipt Date: 20070514
  Transmission Date: 20071010
  Serious: Yes (Hospitalization)
  Sender: FDA-Public Use
  Company Number: 2007BI005981

PATIENT
  Age: 50 Year
  Sex: Male
  Weight: 67.1324 kg

DRUGS (4)
  1. AVONEX [Suspect]
     Indication: MULTIPLE SCLEROSIS
     Dosage: IM
     Route: 030
     Dates: start: 20010101
  2. REQUIP [Concomitant]
  3. BACLOFEN [Concomitant]
  4. CELEBREX [Concomitant]

REACTIONS (3)
  - BLOOD CHOLESTEROL ABNORMAL [None]
  - CORONARY ARTERY OCCLUSION [None]
  - HIGH DENSITY LIPOPROTEIN DECREASED [None]
